FAERS Safety Report 14587593 (Version 5)
Quarter: 2018Q3

REPORT INFORMATION
  Report Type: Spontaneous
  Country: IT (occurrence: IT)
  Receive Date: 20180301
  Receipt Date: 20180702
  Transmission Date: 20181010
  Serious: Yes (Hospitalization)
  Sender: FDA-Public Use
  Company Number: IT-B.I. PHARMACEUTICALS,INC./RIDGEFIELD-2018-12-000643

PATIENT
  Age: 80 Year
  Sex: Female
  Weight: 70 kg

DRUGS (5)
  1. DUOPLAVIN 75 MG/100 MG FILM?COATED TABLETS [Concomitant]
     Indication: ANGIOPLASTY
     Route: 065
  2. MICARDIS [Suspect]
     Active Substance: TELMISARTAN
     Indication: HYPERTENSION
     Route: 048
     Dates: start: 20180101, end: 20180130
  3. ESOPRAL 40 MG COMPRESSE GASTRORESISTENTI [Suspect]
     Active Substance: ESOMEPRAZOLE MAGNESIUM
     Indication: ANTICOAGULANT THERAPY
     Route: 048
     Dates: start: 20180101, end: 20180130
  4. MICARDIS PLUS [Suspect]
     Active Substance: HYDROCHLOROTHIAZIDE\TELMISARTAN
     Indication: HYPERTENSION
     Dosage: 80 MG/25 MG
     Route: 048
     Dates: start: 20171208, end: 20171231
  5. TRIPLIAM 10 MG/2,5 MG/10 MG COMPRESSE RIVESTITE CON FILM [Suspect]
     Active Substance: AMLODIPINE\INDAPAMIDE\PERINDOPRIL
     Indication: CARDIAC FAILURE
     Dosage: 10 MG/2,5 MG/10 MG
     Route: 065
     Dates: start: 20180101, end: 20180130

REACTIONS (2)
  - Hyponatraemia [Recovered/Resolved]
  - Asthenia [Recovered/Resolved]

NARRATIVE: CASE EVENT DATE: 20180130
